APPROVED DRUG PRODUCT: VELIVET
Active Ingredient: DESOGESTREL; ETHINYL ESTRADIOL
Strength: 0.1MG,0.125MG,0.15MG;0.025MG,0.025MG,0.025MG
Dosage Form/Route: TABLET;ORAL-28
Application: A076455 | Product #001 | TE Code: AB
Applicant: DURAMED PHARMACEUTICALS INC SUB BARR LABORATORIES INC
Approved: Feb 24, 2004 | RLD: No | RS: No | Type: RX